FAERS Safety Report 7378726-X (Version None)
Quarter: 2011Q1

REPORT INFORMATION
  Report Type: 
  Country: None (occurrence: None)
  Receive Date: 20110328
  Receipt Date: 20110324
  Transmission Date: 20110831
  Serious: Yes (Death)
  Sender: FDA-Public Use
  Company Number: US-ASTRAZENECA-2011SE16673

PATIENT
  Age: 72 Year
  Sex: Female
  Weight: 50.8 kg

DRUGS (1)
  1. ARIMIDEX [Suspect]
     Indication: BREAST CANCER
     Route: 048
     Dates: start: 20000101, end: 20080327

REACTIONS (1)
  - AMYOTROPHIC LATERAL SCLEROSIS [None]
